FAERS Safety Report 4390855-1 (Version None)
Quarter: 2004Q3

REPORT INFORMATION
  Report Type: 
  Country: None (occurrence: None)
  Receive Date: 20040702
  Receipt Date: 20040702
  Transmission Date: 20050211
  Serious: Yes (Life-Threatening)
  Sender: FDA-Public Use
  Company Number: None

PATIENT

DRUGS (1)
  1. TARKA [Suspect]
     Indication: HYPERTENSION

REACTIONS (1)
  - ANGIONEUROTIC OEDEMA [None]
